FAERS Safety Report 7787765-6 (Version None)
Quarter: 2011Q3

REPORT INFORMATION
  Report Type: 
  Country: None (occurrence: None)
  Receive Date: 20110929
  Receipt Date: 20110922
  Transmission Date: 20111222
  Serious: Yes (Death, Congenital Anomaly)
  Sender: FDA-Public Use
  Company Number: GT-ABBOTT-10P-069-0676816-00

PATIENT

DRUGS (5)
  1. ALUVIA TABLETS 200MG/50MG [Suspect]
     Indication: MATERNAL EXPOSURE DURING PREGNANCY
  2. LAMIVUDINE + ZIDOVUDINE [Concomitant]
     Indication: PROPHYLAXIS AGAINST HIV INFECTION
     Dosage: 300/150 MG
     Route: 064
     Dates: start: 20081208
  3. LAMIVUDINE + ZIDOVUDINE [Concomitant]
     Indication: MATERNAL EXPOSURE DURING PREGNANCY
  4. ALUVIA TABLETS 200MG/50MG [Suspect]
     Indication: PROPHYLAXIS
     Dosage: 200 MG/50 MG
     Route: 064
     Dates: start: 20081208, end: 20090623
  5. LAMIVUDINE + ZIDOVUDINE [Concomitant]
     Indication: HUMAN IMMUNODEFICIENCY VIRUS TRANSMISSION

REACTIONS (2)
  - PREMATURE BABY [None]
  - TRISOMY 21 [None]
